FAERS Safety Report 16861649 (Version 1)
Quarter: 2019Q3

REPORT INFORMATION
  Report Type: Spontaneous
  Country: US (occurrence: US)
  Receive Date: 20190927
  Receipt Date: 20190927
  Transmission Date: 20191005
  Serious: No
  Sender: FDA-Public Use
  Company Number: US-TAKEDA-2019TUS054027

PATIENT
  Age: 60 Year
  Sex: Male

DRUGS (1)
  1. TRINTELLIX [Suspect]
     Active Substance: VORTIOXETINE HYDROBROMIDE
     Indication: GENERALISED ANXIETY DISORDER
     Dosage: UNK
     Route: 065

REACTIONS (2)
  - Off label use [Unknown]
  - Sexual dysfunction [Unknown]
